FAERS Safety Report 7298195-8 (Version None)
Quarter: 2011Q1

REPORT INFORMATION
  Report Type: 
  Country: None (occurrence: None)
  Receive Date: 20110217
  Receipt Date: 20100506
  Transmission Date: 20110831
  Serious: Yes (Death, Other)
  Sender: FDA-Public Use
  Company Number: US-BAYER-2011-006762

PATIENT
  Sex: Male

DRUGS (1)
  1. TRASYLOL [Suspect]
     Indication: VASCULAR GRAFT
     Dosage: UNK
     Route: 042
     Dates: start: 20030626

REACTIONS (10)
  - DEATH [None]
  - CEREBROVASCULAR ACCIDENT [None]
  - EMOTIONAL DISTRESS [None]
  - FEAR OF DEATH [None]
  - MYOCARDIAL INFARCTION [None]
  - ANXIETY [None]
  - NERVOUSNESS [None]
  - INJURY [None]
  - RENAL FAILURE [None]
  - DEPRESSION [None]
